FAERS Safety Report 5832541-4 (Version None)
Quarter: 2008Q3

REPORT INFORMATION
  Report Type: 
  Country: None (occurrence: None)
  Receive Date: 20080804
  Receipt Date: 20080725
  Transmission Date: 20090109
  Serious: Yes (Life-Threatening)
  Sender: FDA-Public Use
  Company Number: US-BAYER-200829214NA

PATIENT
  Age: 51 Year
  Sex: Female

DRUGS (2)
  1. MAGNEVIST [Suspect]
     Indication: NUCLEAR MAGNETIC RESONANCE IMAGING
     Dosage: AS USED: 12 ML
     Route: 042
     Dates: start: 20080723, end: 20080723
  2. LEXAPRO [Concomitant]

REACTIONS (7)
  - ANAPHYLACTIC REACTION [None]
  - NASAL CONGESTION [None]
  - PRURITUS [None]
  - SKIN DISCOLOURATION [None]
  - SNEEZING [None]
  - THROAT TIGHTNESS [None]
  - TREMOR [None]
